FAERS Safety Report 5817701-0 (Version None)
Quarter: 2008Q3

REPORT INFORMATION
  Report Type: 
  Country: None (occurrence: None)
  Receive Date: 20080722
  Receipt Date: 20080711
  Transmission Date: 20090109
  Serious: Yes (Other)
  Sender: FDA-Public Use
  Company Number: PHHY2008DE13837

PATIENT
  Sex: Female

DRUGS (1)
  1. EUCREAS [Suspect]
     Dosage: UNK
     Dates: end: 20080711

REACTIONS (3)
  - BLOOD AMYLASE INCREASED [None]
  - BLOOD CALCIUM INCREASED [None]
  - LIPASE INCREASED [None]
